FAERS Safety Report 18606968 (Version 1)
Quarter: 2020Q4

REPORT INFORMATION
  Report Type: Spontaneous
  Country: KH (occurrence: KH)
  Receive Date: 20201211
  Receipt Date: 20201211
  Transmission Date: 20210114
  Serious: Yes (Death)
  Sender: FDA-Public Use
  Company Number: PHHY2018KH078732

PATIENT
  Age: 68 Year
  Sex: Female

DRUGS (1)
  1. GLIVEC [Suspect]
     Active Substance: IMATINIB MESYLATE
     Indication: CHRONIC MYELOID LEUKAEMIA
     Dosage: 600 MG
     Route: 065

REACTIONS (5)
  - Loss of consciousness [Fatal]
  - Head injury [Fatal]
  - Subdural haematoma [Fatal]
  - Fall [Fatal]
  - Platelet count increased [Unknown]

NARRATIVE: CASE EVENT DATE: 20180502
